FAERS Safety Report 7817177-8 (Version None)
Quarter: 2011Q4

REPORT INFORMATION
  Report Type: 
  Country: None (occurrence: None)
  Receive Date: 20111017
  Receipt Date: 20111017
  Transmission Date: 20120403
  Serious: No
  Sender: FDA-Public Use
  Company Number: None

PATIENT
  Age: 36 Year
  Sex: Male
  Weight: 102.05 kg

DRUGS (2)
  1. LEVAQUIN [Suspect]
     Indication: TYMPANIC MEMBRANE PERFORATION
     Dosage: 500 MG
     Route: 048
     Dates: start: 20021220, end: 20021226
  2. CIPROFLOXACIN [Concomitant]
     Indication: EAR INFECTION
     Dosage: 500 MG
     Route: 048
     Dates: start: 20051121, end: 20051130

REACTIONS (8)
  - DYSSTASIA [None]
  - TENDON PAIN [None]
  - EAR INFECTION [None]
  - PAIN IN EXTREMITY [None]
  - PLANTAR FASCIITIS [None]
  - ARTHRALGIA [None]
  - ABASIA [None]
  - ROTATOR CUFF SYNDROME [None]
